FAERS Safety Report 7727301-3 (Version None)
Quarter: 2011Q3

REPORT INFORMATION
  Report Type: 
  Country: None (occurrence: None)
  Receive Date: 20110902
  Receipt Date: 20110831
  Transmission Date: 20111222
  Serious: Yes (Hospitalization)
  Sender: FDA-Public Use
  Company Number: FR-PFIZER INC-2011200355

PATIENT
  Age: 79 Year
  Sex: Female

DRUGS (15)
  1. PANTOPRAZOLE SODIUM [Suspect]
     Dosage: 1 DF DAILY
     Route: 048
     Dates: start: 20100224
  2. ACETAMINOPHEN [Suspect]
     Dosage: 500 MG, UNK
     Route: 048
     Dates: start: 20100224
  3. ASPIRIN [Suspect]
     Dosage: 1 DF DAILY
     Route: 048
     Dates: start: 20100723
  4. EQUANIL [Concomitant]
     Dosage: 250 MG, UNK
     Dates: end: 20110401
  5. BISOPROLOL FUMARATE [Suspect]
     Dosage: 1 DF DAILY
     Route: 048
     Dates: start: 20101024
  6. FORLAX [Suspect]
     Dosage: 1 DF DAILY
     Route: 048
     Dates: start: 20100224
  7. CRESTOR [Suspect]
     Dosage: 10 MG DAILY
     Route: 048
     Dates: start: 20110425
  8. PAROXETINE HCL [Suspect]
     Dosage: 1 DF DAILY
     Route: 048
     Dates: start: 20100706, end: 20110701
  9. ESIDRIX [Concomitant]
     Dosage: UNK
     Dates: end: 20110401
  10. ATORVASTATIN CALCIUM [Concomitant]
     Dosage: 10 MG, UNK
     Dates: end: 20110424
  11. XANAX [Concomitant]
     Dosage: OCCASIONAL INTAKE
  12. PAROXETINE HCL [Suspect]
     Dosage: 0.5 DF DAILY
     Route: 048
     Dates: start: 20110701
  13. LEXOMIL [Concomitant]
     Dosage: OCCASIONAL INTAKE
     Dates: end: 20110401
  14. ZOLPIDEM TARTRATE [Suspect]
     Dosage: 1 DF DAILY
     Route: 048
     Dates: start: 20100224
  15. BONIVA [Concomitant]
     Dosage: UNK
     Dates: end: 20110401

REACTIONS (3)
  - PRURIGO [None]
  - PRURITUS [None]
  - ECZEMA [None]
